FAERS Safety Report 10228436 (Version 2)
Quarter: 2014Q2

REPORT INFORMATION
  Report Type: Report from Study
  Country: US (occurrence: US)
  Receive Date: 20140610
  Receipt Date: 20140616
  Transmission Date: 20141212
  Serious: Yes (Death, Hospitalization)
  Sender: FDA-Public Use
  Company Number: US-MERCK-1406USA003923

PATIENT
  Age: 72 Year
  Sex: Male

DRUGS (2)
  1. VORINOSTAT [Suspect]
     Indication: ACUTE MYELOID LEUKAEMIA
     Dosage: 500 MG, TID
     Route: 048
     Dates: start: 20140529, end: 20140530
  2. TEMODAR [Suspect]
     Indication: ACUTE MYELOID LEUKAEMIA
     Dosage: 200 MG, QD
     Route: 048
     Dates: start: 20140515, end: 20140528

REACTIONS (4)
  - Escherichia bacteraemia [Fatal]
  - Subdural haematoma [Fatal]
  - Febrile neutropenia [Not Recovered/Not Resolved]
  - Diarrhoea [Recovered/Resolved]
